FAERS Safety Report 8215994-6 (Version None)
Quarter: 2012Q1

REPORT INFORMATION
  Report Type: 
  Country: None (occurrence: None)
  Receive Date: 20120316
  Receipt Date: 20120301
  Transmission Date: 20120608
  Serious: Yes (Hospitalization, Other)
  Sender: FDA-Public Use
  Company Number: US-PFIZER INC-2012066924

PATIENT
  Sex: Male

DRUGS (2)
  1. AMIODARONE HCL [Suspect]
     Dosage: UNK
     Dates: start: 20110606, end: 20111121
  2. DRONEDARONE HCL [Suspect]
     Dosage: 400 MG, 2X/DAY
     Route: 048
     Dates: start: 20111121, end: 20111201

REACTIONS (1)
  - INTERSTITIAL LUNG DISEASE [None]
